FAERS Safety Report 16771770 (Version 1)
Quarter: 2019Q4

REPORT INFORMATION
  Report Type: Spontaneous
  Country: US (occurrence: US)
  Receive Date: 20190903
  Receipt Date: 20190903
  Transmission Date: 20200122
  Serious: No
  Sender: FDA-Public Use
  Company Number: None

PATIENT
  Age: 23 Year
  Sex: Female
  Weight: 71.55 kg

DRUGS (12)
  1. VITAMIN B12 [Concomitant]
     Active Substance: CYANOCOBALAMIN
  2. HUMATE-P [Concomitant]
     Active Substance: HUMAN COAGULATION FACTOR VIII/VON WILLEBRAND FACTOR COMPLEX
  3. SPRINTEC [Concomitant]
     Active Substance: ETHINYL ESTRADIOL\NORGESTIMATE
  4. TRANEXAMIC ACID. [Concomitant]
     Active Substance: TRANEXAMIC ACID
  5. COENZYME Q10 [Concomitant]
     Active Substance: UBIDECARENONE
  6. STRATTERA [Concomitant]
     Active Substance: ATOMOXETINE HYDROCHLORIDE
  7. VITAMIN B2 [Concomitant]
     Active Substance: RIBOFLAVIN
  8. BACLOFEN. [Concomitant]
     Active Substance: BACLOFEN
  9. VITAMIN D3 [Concomitant]
     Active Substance: CHOLECALCIFEROL
  10. METHYLPHENIDATE ER [Concomitant]
     Active Substance: METHYLPHENIDATE
  11. METHYLPHENIDATE 54MG ER OSM TABLET, GENERIC FOR CONCERTA 54MG ER TAB [Suspect]
     Active Substance: METHYLPHENIDATE
     Indication: ATTENTION DEFICIT/HYPERACTIVITY DISORDER
     Dosage: ?          QUANTITY:1 TABLET(S);?
     Route: 048
     Dates: start: 20190823, end: 20190830
  12. AIMOVIG [Concomitant]
     Active Substance: ERENUMAB-AOOE

REACTIONS (17)
  - Feeling abnormal [None]
  - Abdominal pain upper [None]
  - Hot flush [None]
  - Anxiety [None]
  - Aphasia [None]
  - Hypersensitivity [None]
  - Affect lability [None]
  - Irritability [None]
  - Therapeutic product effect incomplete [None]
  - Memory impairment [None]
  - Product substitution issue [None]
  - Diarrhoea [None]
  - Disturbance in attention [None]
  - Visual impairment [None]
  - Decreased appetite [None]
  - Heart rate increased [None]
  - Dry mouth [None]

NARRATIVE: CASE EVENT DATE: 20190829
